FAERS Safety Report 15083896 (Version 1)
Quarter: 2018Q2

REPORT INFORMATION
  Report Type: Spontaneous
  Country: FI (occurrence: FI)
  Receive Date: 20180628
  Receipt Date: 20180628
  Transmission Date: 20180711
  Serious: Yes (Hospitalization, Other)
  Sender: FDA-Public Use
  Company Number: FI-BRISTOL-MYERS SQUIBB COMPANY-BMS-2018-057919

PATIENT
  Age: 77 Year
  Sex: Male

DRUGS (1)
  1. ELIQUIS [Suspect]
     Active Substance: APIXABAN
     Indication: DEEP VEIN THROMBOSIS
     Dosage: 5 MG, BID
     Route: 065
     Dates: start: 20180531, end: 20180609

REACTIONS (6)
  - Pancytopenia [Recovering/Resolving]
  - Hyperkalaemia [Unknown]
  - Myelodysplastic syndrome [Unknown]
  - Dyspnoea [Unknown]
  - Infection [Unknown]
  - Bone marrow disorder [Recovering/Resolving]

NARRATIVE: CASE EVENT DATE: 201806
